FAERS Safety Report 7395263-7 (Version None)
Quarter: 2011Q2

REPORT INFORMATION
  Report Type: 
  Country: None (occurrence: None)
  Receive Date: 20110405
  Receipt Date: 20110329
  Transmission Date: 20111010
  Serious: Yes (Hospitalization, Other)
  Sender: FDA-Public Use
  Company Number: US-B.I. PHARMACEUTICALS,INC./RIDGEFIELD-2011-BP-09498BP

PATIENT

DRUGS (2)
  1. PRADAXA [Suspect]
  2. ASPIRIN [Concomitant]

REACTIONS (1)
  - HAEMORRHAGE [None]
